FAERS Safety Report 23113553 (Version 10)
Quarter: 2025Q3

REPORT INFORMATION
  Report Type: Report from Study
  Country: US (occurrence: US)
  Receive Date: 20231027
  Receipt Date: 20250825
  Transmission Date: 20251021
  Serious: Yes (Hospitalization, Other)
  Sender: TAKEDA
  Company Number: US-TAKEDA-US202001685

PATIENT
  Age: 72 Year
  Sex: Female

DRUGS (2)
  1. HUMAN IMMUNOGLOBULIN G\HYALURONIDASE RECOMBINANT HUMAN [Suspect]
     Active Substance: HUMAN IMMUNOGLOBULIN G\HYALURONIDASE (HUMAN RECOMBINANT)
     Indication: Primary immunodeficiency syndrome
     Dosage: 25 GRAM, Q4WEEKS
  2. HUMAN IMMUNOGLOBULIN G\HYALURONIDASE RECOMBINANT HUMAN [Suspect]
     Active Substance: HUMAN IMMUNOGLOBULIN G\HYALURONIDASE (HUMAN RECOMBINANT)
     Indication: Immunodeficiency common variable
     Dosage: 25 GRAM, MONTHLY

REACTIONS (28)
  - Norovirus infection [Recovered/Resolved]
  - Tooth infection [Recovering/Resolving]
  - Cellulitis [Recovering/Resolving]
  - Nephrolithiasis [Unknown]
  - Bone pain [Unknown]
  - Abdominal distension [Unknown]
  - Headache [Unknown]
  - Dehydration [Unknown]
  - Drug level decreased [Unknown]
  - Infusion site pruritus [Unknown]
  - Scar [Unknown]
  - Device use issue [Unknown]
  - Periodontal disease [Unknown]
  - Synovial cyst [Unknown]
  - Peripheral swelling [Unknown]
  - Crying [Unknown]
  - Brain fog [Unknown]
  - Depressed mood [Unknown]
  - COVID-19 [Unknown]
  - Bronchitis [Recovering/Resolving]
  - Diastolic dysfunction [Unknown]
  - Blood magnesium decreased [Unknown]
  - Asthma [Unknown]
  - Pain in extremity [Unknown]
  - Infusion site haemorrhage [Unknown]
  - Fatigue [Unknown]
  - Infusion site pain [Unknown]
  - Urticaria [Not Recovered/Not Resolved]

NARRATIVE: CASE EVENT DATE: 20221201
